FAERS Safety Report 4602461-1 (Version None)
Quarter: 2005Q1

REPORT INFORMATION
  Report Type: 
  Country: None (occurrence: None)
  Receive Date: 20050307
  Receipt Date: 20050222
  Transmission Date: 20050727
  Serious: Yes (Hospitalization, Other)
  Sender: FDA-Public Use
  Company Number: 2004120003

PATIENT
  Age: 84 Year
  Sex: Female

DRUGS (3)
  1. NEURONTIN [Suspect]
     Indication: NEUROPATHIC PAIN
     Dosage: 200 MG (200 MG, 1 IN 1 D)
     Dates: start: 20040101
  2. PROPACET (DECTROPROPOXYPHENE NAPSILATE, PARACETAMOL) [Concomitant]
  3. LISINOPRIL [Concomitant]

REACTIONS (34)
  - ARTHRITIS [None]
  - ASPARTATE AMINOTRANSFERASE INCREASED [None]
  - BLOOD BICARBONATE INCREASED [None]
  - BLOOD CHLORIDE DECREASED [None]
  - BLOOD PRESSURE DIASTOLIC DECREASED [None]
  - BLOOD PRESSURE SYSTOLIC INCREASED [None]
  - BLOOD URINE PRESENT [None]
  - BUNDLE BRANCH BLOCK RIGHT [None]
  - CARDIAC FAILURE CONGESTIVE [None]
  - CONJUNCTIVITIS [None]
  - CONVULSION [None]
  - DYSKINESIA [None]
  - EAR DISCOMFORT [None]
  - EXOSTOSIS [None]
  - FLUID OVERLOAD [None]
  - GAIT DISTURBANCE [None]
  - HAEMATOCRIT DECREASED [None]
  - HAEMOGLOBIN DECREASED [None]
  - HYPOXIA [None]
  - INAPPROPRIATE ANTIDIURETIC HORMONE SECRETION [None]
  - MEMORY IMPAIRMENT [None]
  - MOVEMENT DISORDER [None]
  - MUSCLE SPASMS [None]
  - MUSCLE TIGHTNESS [None]
  - MUSCLE TWITCHING [None]
  - MYELOPATHY [None]
  - NEURALGIA [None]
  - OVERWEIGHT [None]
  - PARAESTHESIA [None]
  - POSTICTAL STATE [None]
  - PULMONARY OEDEMA [None]
  - QRS AXIS ABNORMAL [None]
  - SPINAL DISORDER [None]
  - SPINAL OSTEOARTHRITIS [None]
